FAERS Safety Report 5339287-X (Version None)
Quarter: 2007Q2

REPORT INFORMATION
  Report Type: 
  Country: None (occurrence: None)
  Receive Date: 20070525
  Receipt Date: 20070512
  Transmission Date: 20071010
  Serious: Yes (Hospitalization)
  Sender: FDA-Public Use
  Company Number: A-JP2007-15589

PATIENT
  Age: 42 Year
  Sex: Female
  Weight: 67 kg

DRUGS (14)
  1. TRACLEER [Suspect]
     Indication: PULMONARY HYPERTENSION
     Dosage: SEE IMAGE
     Route: 048
     Dates: start: 20060418, end: 20060811
  2. TRACLEER [Suspect]
     Indication: PULMONARY HYPERTENSION
     Dosage: SEE IMAGE
     Route: 048
     Dates: start: 20060812, end: 20061124
  3. TRACLEER [Suspect]
     Indication: PULMONARY HYPERTENSION
     Dosage: SEE IMAGE
     Route: 048
     Dates: start: 20061125, end: 20070309
  4. TRACLEER [Suspect]
     Indication: PULMONARY HYPERTENSION
     Dosage: SEE IMAGE
     Route: 048
     Dates: start: 20070310
  5. EPOPROSTENOL SODIUM [Concomitant]
  6. ASPIRIN [Concomitant]
  7. BERAPROST SODIUM (BERAPROST SODIUM) [Concomitant]
  8. SILDENAFIL CITRATE [Concomitant]
  9. DIGOXIN [Concomitant]
  10. FUROSEMIDE [Concomitant]
  11. LEVOTHYROXINE SODIUM [Concomitant]
  12. SPIRONOLACTONE [Concomitant]
  13. AMLODIPINE BESYLATE [Concomitant]
  14. OXYGEN (OXYGEN) [Concomitant]

REACTIONS (2)
  - INFLAMMATION [None]
  - PNEUMONIA [None]
